FAERS Safety Report 22038371 (Version 1)
Quarter: 2023Q1

REPORT INFORMATION
  Report Type: Spontaneous
  Country: US (occurrence: US)
  Receive Date: 20230227
  Receipt Date: 20230227
  Transmission Date: 20230418
  Serious: Yes (Life-Threatening, Hospitalization)
  Sender: FDA-Public Use
  Company Number: US-LUPIN PHARMACEUTICALS INC.-2023-01433

PATIENT
  Sex: Female
  Weight: 1.12 kg

DRUGS (10)
  1. HYDROCORTISONE [Suspect]
     Active Substance: HYDROCORTISONE
     Indication: Neonatal hypotension
     Dosage: UNK
     Route: 065
  2. HYDROCORTISONE [Suspect]
     Active Substance: HYDROCORTISONE
     Indication: Neonatal respiratory acidosis
  3. HYDROCORTISONE [Suspect]
     Active Substance: HYDROCORTISONE
     Indication: Hypoxia
  4. EPINEPHRINE [Suspect]
     Active Substance: EPINEPHRINE
     Indication: Neonatal hypotension
     Dosage: UNK
     Route: 065
  5. EPINEPHRINE [Suspect]
     Active Substance: EPINEPHRINE
     Indication: Neonatal respiratory acidosis
  6. EPINEPHRINE [Suspect]
     Active Substance: EPINEPHRINE
     Indication: Hypoxia
  7. DOPAMINE [Suspect]
     Active Substance: DOPAMINE HYDROCHLORIDE
     Indication: Neonatal hypotension
     Dosage: UNK
     Route: 065
  8. DOPAMINE [Suspect]
     Active Substance: DOPAMINE HYDROCHLORIDE
     Indication: Respiratory acidosis
  9. DOPAMINE [Suspect]
     Active Substance: DOPAMINE HYDROCHLORIDE
     Indication: Hypoxia
  10. NITRIC OXIDE [Concomitant]
     Active Substance: NITRIC OXIDE
     Indication: Pulmonary hypertension
     Dosage: UNK

REACTIONS (3)
  - Right ventricular dysfunction [Unknown]
  - Drug ineffective for unapproved indication [Unknown]
  - Off label use [Unknown]
